FAERS Safety Report 4297741-6 (Version None)
Quarter: 2004Q1

REPORT INFORMATION
  Report Type: 
  Country: None (occurrence: None)
  Receive Date: 20040126
  Receipt Date: 20031103
  Transmission Date: 20041129
  Serious: No
  Sender: FDA-Public Use
  Company Number: USA031151541

PATIENT
  Age: 11 Year
  Sex: Female
  Weight: 51 kg

DRUGS (1)
  1. STRATTERA [Suspect]
     Indication: ATTENTION DEFICIT/HYPERACTIVITY DISORDER
     Dosage: 60 MG/DAY
     Dates: start: 20031103

REACTIONS (5)
  - DYSPEPSIA [None]
  - FATIGUE [None]
  - HEADACHE [None]
  - PALLOR [None]
  - TREMOR [None]
